FAERS Safety Report 12244507 (Version 44)
Quarter: 2020Q4

REPORT INFORMATION
  Report Type: Other
  Country: CA (occurrence: CA)
  Receive Date: 20160407
  Receipt Date: 20201229
  Transmission Date: 20210113
  Serious: Yes (Other)
  Sender: FDA-Public Use
  Company Number: CA-ROCHE-1132730

PATIENT
  Age: 65 Year
  Sex: Female
  Weight: 60 kg

DRUGS (23)
  1. ACTEMRA [Suspect]
     Active Substance: TOCILIZUMAB
     Route: 042
     Dates: start: 20110503, end: 20131022
  2. ACETYLSALICYLIC ACID [Concomitant]
     Active Substance: ASPIRIN
     Indication: PRODUCT USED FOR UNKNOWN INDICATION
  3. ACTEMRA [Suspect]
     Active Substance: TOCILIZUMAB
     Route: 042
     Dates: start: 20150708, end: 20170614
  4. ACTEMRA [Suspect]
     Active Substance: TOCILIZUMAB
     Route: 042
     Dates: start: 20190214
  5. ACTEMRA [Suspect]
     Active Substance: TOCILIZUMAB
     Route: 042
     Dates: start: 20180920
  6. FOLIC ACID. [Concomitant]
     Active Substance: FOLIC ACID
     Indication: PRODUCT USED FOR UNKNOWN INDICATION
  7. CELEBREX [Concomitant]
     Active Substance: CELECOXIB
     Indication: PRODUCT USED FOR UNKNOWN INDICATION
  8. BENADRYL [Concomitant]
     Active Substance: DIPHENHYDRAMINE HYDROCHLORIDE
  9. ACTEMRA [Suspect]
     Active Substance: TOCILIZUMAB
     Route: 042
     Dates: start: 20101221, end: 20110316
  10. ACTEMRA [Suspect]
     Active Substance: TOCILIZUMAB
     Route: 042
     Dates: start: 20160707
  11. PREVNAR 13 [Suspect]
     Active Substance: PNEUMOCOCCAL 13-VALENT CONJUGATE VACCINE
     Indication: PNEUMONIA
     Route: 065
     Dates: start: 20190202, end: 20190202
  12. ACTEMRA [Suspect]
     Active Substance: TOCILIZUMAB
     Indication: RHEUMATOID ARTHRITIS
     Route: 042
     Dates: start: 20101026, end: 20101123
  13. ACTEMRA [Suspect]
     Active Substance: TOCILIZUMAB
     Route: 042
     Dates: start: 20101123
  14. ACTEMRA [Suspect]
     Active Substance: TOCILIZUMAB
     Route: 042
     Dates: start: 20121002
  15. ACTEMRA [Suspect]
     Active Substance: TOCILIZUMAB
     Route: 042
     Dates: start: 20131119, end: 20140603
  16. ACTEMRA [Suspect]
     Active Substance: TOCILIZUMAB
     Route: 042
     Dates: start: 20140703, end: 20150612
  17. ACTEMRA [Suspect]
     Active Substance: TOCILIZUMAB
     Route: 042
     Dates: start: 20170711, end: 20190118
  18. ASA [Concomitant]
     Active Substance: ASPIRIN
  19. SOLU-MEDROL [Concomitant]
     Active Substance: METHYLPREDNISOLONE SODIUM SUCCINATE
  20. ACTEMRA [Suspect]
     Active Substance: TOCILIZUMAB
     Route: 042
     Dates: start: 20110405, end: 20110405
  21. ACTEMRA [Suspect]
     Active Substance: TOCILIZUMAB
     Route: 042
     Dates: start: 20100928
  22. TYLENOL [Concomitant]
     Active Substance: ACETAMINOPHEN
  23. METOPROLOL. [Concomitant]
     Active Substance: METOPROLOL
     Indication: BLOOD PRESSURE MEASUREMENT

REACTIONS (44)
  - Infusion related reaction [Unknown]
  - Tooth infection [Unknown]
  - Gingival erythema [Recovered/Resolved]
  - Cough [Recovered/Resolved]
  - Swelling [Unknown]
  - Pain [Not Recovered/Not Resolved]
  - Musculoskeletal stiffness [Recovered/Resolved]
  - Cough [Recovering/Resolving]
  - Blood pressure systolic increased [Unknown]
  - Blood pressure systolic abnormal [Unknown]
  - Toothache [Recovered/Resolved]
  - Weight decreased [Unknown]
  - Influenza [Recovering/Resolving]
  - Blood pressure increased [Unknown]
  - Gingival abscess [Unknown]
  - Hypersensitivity [Recovered/Resolved]
  - Oxygen saturation decreased [Unknown]
  - Off label use [Unknown]
  - Sinusitis [Recovering/Resolving]
  - Bite [Unknown]
  - Oxygen saturation decreased [Unknown]
  - Tooth disorder [Unknown]
  - Product use issue [Unknown]
  - Tooth abscess [Recovered/Resolved]
  - Fatigue [Unknown]
  - Quality of life decreased [Unknown]
  - Peripheral swelling [Recovering/Resolving]
  - Nasopharyngitis [Recovering/Resolving]
  - Body temperature decreased [Unknown]
  - Rheumatoid arthritis [Not Recovered/Not Resolved]
  - Blood pressure diastolic abnormal [Unknown]
  - Nasopharyngitis [Recovering/Resolving]
  - Weight increased [Not Recovered/Not Resolved]
  - Gingival swelling [Recovered/Resolved]
  - Heart rate decreased [Unknown]
  - Tooth infection [Recovered/Resolved]
  - Thyroid mass [Unknown]
  - Nodule [Recovered/Resolved]
  - Oral infection [Recovered/Resolved]
  - Pyrexia [Not Recovered/Not Resolved]
  - Blood pressure increased [Unknown]
  - Gingivitis [Recovering/Resolving]
  - Toothache [Recovering/Resolving]
  - Heart rate decreased [Unknown]

NARRATIVE: CASE EVENT DATE: 201209
